FAERS Safety Report 18967596 (Version 2)
Quarter: 2021Q1

REPORT INFORMATION
  Report Type: Spontaneous
  Country: US (occurrence: US)
  Receive Date: 20210304
  Receipt Date: 20210317
  Transmission Date: 20210420
  Serious: No
  Sender: FDA-Public Use
  Company Number: US-ORGANON-2012USA010369

PATIENT
  Sex: Female

DRUGS (2)
  1. NUVARING [Suspect]
     Active Substance: ETHINYL ESTRADIOL\ETONOGESTREL
     Dosage: 1 DOSAGE FORM
     Route: 067
  2. ETONOGESTREL (+) ETHINYL ESTRADIOL [Suspect]
     Active Substance: ETHINYL ESTRADIOL\ETONOGESTREL
     Indication: MENSTRUAL CYCLE MANAGEMENT
     Dosage: 1 VAGINAL RING POTENCY: ETONOGESTREL/ETHINYL ESTRADIOL: 2.7 MILLIGRAM/11.7 MILLIGRAM
     Route: 067

REACTIONS (20)
  - Metrorrhagia [Unknown]
  - Product use in unapproved indication [Unknown]
  - Menorrhagia [Unknown]
  - Breast pain [Unknown]
  - Rash [Unknown]
  - Fatigue [Unknown]
  - Skin exfoliation [Unknown]
  - Urinary tract infection [Unknown]
  - Depression [Unknown]
  - Muscle spasms [Unknown]
  - Anxiety [Unknown]
  - Alopecia [Unknown]
  - Malaise [Unknown]
  - Mood swings [Unknown]
  - Drug ineffective for unapproved indication [Unknown]
  - Insomnia [Unknown]
  - Skin irritation [Unknown]
  - Skin burning sensation [Unknown]
  - Scar [Unknown]
  - Premenstrual syndrome [Unknown]
